FAERS Safety Report 11455182 (Version 1)
Quarter: 2015Q3

REPORT INFORMATION
  Report Type: Spontaneous
  Country: GB (occurrence: GB)
  Receive Date: 20150903
  Receipt Date: 20150903
  Transmission Date: 20151125
  Serious: Yes (Hospitalization)
  Sender: FDA-Public Use
  Company Number: PHHY2015GB101955

PATIENT
  Age: 56 Year
  Sex: Female

DRUGS (4)
  1. PREDNISOLONE. [Suspect]
     Active Substance: PREDNISOLONE
     Dosage: 60 MG, QD
     Route: 048
  2. WARFARIN [Concomitant]
     Active Substance: WARFARIN
     Indication: ATRIAL FIBRILLATION
     Route: 065
     Dates: start: 201404
  3. PREDNISOLONE. [Suspect]
     Active Substance: PREDNISOLONE
     Indication: OPTIC NEURITIS
     Dosage: 10 MG, QD
     Route: 048
  4. PREDNISOLONE. [Suspect]
     Active Substance: PREDNISOLONE
     Dosage: 5 MG, QD
     Route: 048

REACTIONS (3)
  - Diabetes mellitus [Unknown]
  - Calciphylaxis [Recovering/Resolving]
  - Obesity [Unknown]
